FAERS Safety Report 8508619-3 (Version None)
Quarter: 2012Q3

REPORT INFORMATION
  Report Type: 
  Country: None (occurrence: None)
  Receive Date: 20120713
  Receipt Date: 20120702
  Transmission Date: 20120928
  Serious: Yes (Other)
  Sender: FDA-Public Use
  Company Number: US-CELGENEUS-163-21880-12070165

PATIENT
  Sex: Male

DRUGS (11)
  1. ABILIFY [Concomitant]
     Route: 065
  2. AMIODARONE HCL [Concomitant]
     Route: 065
  3. CITALOPRAM HYDROBROMIDE [Concomitant]
     Dosage: LOW DOSE
     Route: 048
  4. REVLIMID [Suspect]
     Dosage: 25 MILLIGRAM
     Route: 048
     Dates: start: 20071214
  5. REVLIMID [Suspect]
     Dosage: 5 MILLIGRAM
     Route: 048
     Dates: start: 20110801
  6. ACIDOPHILUS HIGH-POTENCY [Concomitant]
     Route: 065
  7. REVLIMID [Suspect]
     Dosage: 10-15MG
     Route: 048
     Dates: start: 20090601
  8. AMBIEN [Concomitant]
     Route: 065
  9. ALPRAZOLAM [Concomitant]
     Route: 065
  10. ASPIRIN [Concomitant]
     Dosage: LOW DOSE
     Route: 048
  11. HYDROBROMIDE [Concomitant]
     Dosage: LOW DOSE
     Route: 048

REACTIONS (1)
  - MYELODYSPLASTIC SYNDROME [None]
